FAERS Safety Report 8971169 (Version 1)
Quarter: 2012Q4

REPORT INFORMATION
  Report Type: 
  Country: US (occurrence: US)
  Receive Date: 20121218
  Receipt Date: 20121218
  Transmission Date: 20130627
  Serious: Yes (Disabling, Other)
  Sender: FDA-Public Use
  Company Number: US-B.I. PHARMACEUTICALS,INC./RIDGEFIELD-2012-BI-03041BP

PATIENT
  Age: 75 Year
  Sex: Female
  Weight: 92 kg

DRUGS (10)
  1. PRADAXA [Suspect]
     Indication: ATRIAL FIBRILLATION
     Route: 048
     Dates: start: 201102, end: 20120228
  2. SPIRIVA [Suspect]
     Indication: CHRONIC OBSTRUCTIVE PULMONARY DISEASE
     Dosage: 18 mcg
     Route: 055
     Dates: start: 2005
  3. SYNTHROID [Concomitant]
     Indication: THYROID DISORDER
     Dosage: 20 mg
     Route: 048
  4. FUROSEMIDE [Concomitant]
     Dosage: 40 mg
     Route: 048
     Dates: start: 201103
  5. METOPROLOL [Concomitant]
     Indication: CARDIAC DISORDER
     Dosage: 25 mg
     Route: 048
     Dates: start: 201103
  6. PERFORMIST [Concomitant]
     Indication: CHRONIC OBSTRUCTIVE PULMONARY DISEASE
     Dosage: 40 mcg
     Route: 055
     Dates: start: 2005
  7. ASPIRIN [Concomitant]
     Indication: CARDIAC DISORDER
     Dosage: 81 mg
     Route: 048
     Dates: start: 201103
  8. BUDEFONIDE [Concomitant]
     Indication: CHRONIC OBSTRUCTIVE PULMONARY DISEASE
     Dosage: 1 mg
     Route: 055
     Dates: start: 2005
  9. FLECANIDE [Concomitant]
     Indication: HEART RATE IRREGULAR
     Dosage: 200 mg
     Route: 048
     Dates: start: 201103
  10. OXYGEN [Concomitant]
     Indication: CHRONIC OBSTRUCTIVE PULMONARY DISEASE

REACTIONS (2)
  - Blindness unilateral [Not Recovered/Not Resolved]
  - Retinal haemorrhage [Not Recovered/Not Resolved]
